FAERS Safety Report 20535499 (Version 4)
Quarter: 2023Q1

REPORT INFORMATION
  Report Type: Spontaneous
  Country: US (occurrence: US)
  Receive Date: 20220302
  Receipt Date: 20230313
  Transmission Date: 20230418
  Serious: Yes (Disabling, Other)
  Sender: FDA-Public Use
  Company Number: US-ORGANON-O2202USA002293

PATIENT
  Sex: Female

DRUGS (3)
  1. SINGULAIR [Suspect]
     Active Substance: MONTELUKAST SODIUM
     Dosage: CHEW AND SWALLOW ONE TABLET AT BEDTIME (5MG 1 QD)
     Route: 048
     Dates: start: 200508, end: 2009
  2. SINGULAIR [Suspect]
     Active Substance: MONTELUKAST SODIUM
     Dosage: 10MG TABLET 1 (ONE) ORAL QD
     Route: 048
     Dates: start: 20100830
  3. BENADRYL [Suspect]
     Active Substance: DIPHENHYDRAMINE HYDROCHLORIDE
     Dosage: 25 MG 1 QD

REACTIONS (23)
  - Bipolar disorder [Not Recovered/Not Resolved]
  - Neuropsychiatric symptoms [Not Recovered/Not Resolved]
  - Panic attack [Not Recovered/Not Resolved]
  - Anxiety [Not Recovered/Not Resolved]
  - Dysphemia [Not Recovered/Not Resolved]
  - Major depression [Not Recovered/Not Resolved]
  - Autism spectrum disorder [Unknown]
  - Joint injury [Unknown]
  - Suicidal ideation [Unknown]
  - Suicide attempt [Unknown]
  - Post-traumatic stress disorder [Unknown]
  - Skin hyperpigmentation [Unknown]
  - Arthritis [Unknown]
  - Ear pain [Unknown]
  - Chronic sinusitis [Unknown]
  - Arthralgia [Unknown]
  - Skin abrasion [Unknown]
  - Fall [Unknown]
  - Scar [Unknown]
  - Ligament rupture [Unknown]
  - Joint hyperextension [Unknown]
  - Migraine without aura [Unknown]
  - Localised infection [Recovered/Resolved]

NARRATIVE: CASE EVENT DATE: 20050101
